FAERS Safety Report 9354330 (Version 1)
Quarter: 2013Q2

REPORT INFORMATION
  Report Type: Spontaneous
  Country: DE (occurrence: None)
  Receive Date: 20130613
  Receipt Date: 20130613
  Transmission Date: 20140414
  Serious: Yes (Other)
  Sender: FDA-Public Use
  Company Number: GER/GER/13/0029988

PATIENT
  Age: 34 Year
  Sex: Female
  Weight: 65 kg

DRUGS (3)
  1. FLUOXETINE (FLUOXETINE) [Suspect]
     Indication: DEPRESSION
     Route: 048
  2. AMOXICILLIN (AMOXICILLIN) [Concomitant]
  3. FOLSAURE (FOLIC ACID) [Concomitant]

REACTIONS (5)
  - Pneumonia [None]
  - Cervical incompetence [None]
  - Premature labour [None]
  - Caesarean section [None]
  - Exposure during pregnancy [None]
